FAERS Safety Report 16767119 (Version 1)
Quarter: 2019Q3

REPORT INFORMATION
  Report Type: Spontaneous
  Country: FR (occurrence: FR)
  Receive Date: 20190903
  Receipt Date: 20190903
  Transmission Date: 20191005
  Serious: Yes (Hospitalization)
  Sender: FDA-Public Use
  Company Number: FR-MYLANLABS-2019M1081345

PATIENT
  Age: 76 Year
  Sex: Male
  Weight: 147 kg

DRUGS (10)
  1. DIOSMINE [Concomitant]
     Active Substance: DIOSMIN
  2. SPIRONOLACTONE. [Concomitant]
     Active Substance: SPIRONOLACTONE
  3. ADENURIC [Concomitant]
     Active Substance: FEBUXOSTAT
  4. JANUVIA [Concomitant]
     Active Substance: SITAGLIPTIN PHOSPHATE
  5. SITAGLIPTINE [Concomitant]
     Active Substance: SITAGLIPTIN
  6. LISINOPRIL. [Concomitant]
     Active Substance: LISINOPRIL
  7. AMIODARONE [Suspect]
     Active Substance: AMIODARONE
     Indication: ATRIAL FIBRILLATION
     Dosage: 200 MILLIGRAM, QD
     Route: 048
     Dates: start: 20190218, end: 20190304
  8. GLIMEPIRIDE. [Concomitant]
     Active Substance: GLIMEPIRIDE
  9. FUROSEMIDE. [Concomitant]
     Active Substance: FUROSEMIDE
  10. FLUINDIONE [Concomitant]
     Active Substance: FLUINDIONE

REACTIONS (2)
  - Pruritus [Recovered/Resolved]
  - Rash [Recovered/Resolved]

NARRATIVE: CASE EVENT DATE: 20190228
